FAERS Safety Report 5343411-2 (Version None)
Quarter: 2007Q2

REPORT INFORMATION
  Report Type: 
  Country: None (occurrence: None)
  Receive Date: 20070531
  Receipt Date: 20070516
  Transmission Date: 20071010
  Serious: Yes (Hospitalization)
  Sender: FDA-Public Use
  Company Number: 100#08#2007-01729

PATIENT
  Age: 21 Year
  Sex: Male

DRUGS (8)
  1. ACTIVATED CHARCOAL (CHARCOAL, ACTIVATED) (ACTIVATED CHARCOAL) [Suspect]
     Indication: DRUG THERAPY
     Dosage: 30-60 G (EVERY 4-6 HOURS), NASOGASTRIC TUBE
  2. AMITRIPTLINE HCL [Suspect]
  3. MORPHINE [Suspect]
     Indication: AGITATION
  4. MORPHINE [Suspect]
     Indication: PAIN
  5. PHENYTOIN [Concomitant]
  6. DIAZEPAM [Concomitant]
  7. LIDOCAINE [Concomitant]
  8. NOREPINEPHRINE BITARTRATE [Concomitant]

REACTIONS (4)
  - AGITATION [None]
  - BEZOAR [None]
  - PAIN [None]
  - SMALL INTESTINAL OBSTRUCTION [None]
